FAERS Safety Report 6266565-2 (Version None)
Quarter: 2009Q3

REPORT INFORMATION
  Report Type: 
  Country: None (occurrence: None)
  Receive Date: 20090710
  Receipt Date: 20090624
  Transmission Date: 20100115
  Serious: Yes (Other)
  Sender: FDA-Public Use
  Company Number: IMP_04454_2009

PATIENT
  Age: 19 Year
  Sex: Female

DRUGS (2)
  1. MINOCYCLINE HCL [Suspect]
     Indication: ACNE PUSTULAR
     Dosage: 100 MG BID
  2. ORAL CONTRACEPTIVE NOS [Concomitant]

REACTIONS (4)
  - PANNICULITIS LOBULAR [None]
  - POLYARTERITIS NODOSA [None]
  - SKIN LESION [None]
  - VASCULITIS NECROTISING [None]
